FAERS Safety Report 21113075 (Version 1)
Quarter: 2022Q3

REPORT INFORMATION
  Report Type: Spontaneous
  Country: DK (occurrence: DK)
  Receive Date: 20220721
  Receipt Date: 20220721
  Transmission Date: 20221027
  Serious: Yes (Hospitalization)
  Sender: FDA-Public Use
  Company Number: None

PATIENT
  Age: 81 Year
  Sex: Male

DRUGS (2)
  1. HALOPERIDOL [Suspect]
     Active Substance: HALOPERIDOL
     Indication: Delirium
     Dosage: STRENGTH: 5 MG/ML
     Route: 065
     Dates: start: 20190118, end: 20190118
  2. HALOPERIDOL [Suspect]
     Active Substance: HALOPERIDOL
     Indication: Aggression
     Route: 048
     Dates: start: 20190119, end: 20190128

REACTIONS (9)
  - Musculoskeletal stiffness [Unknown]
  - Neuroleptic malignant syndrome [Unknown]
  - Tongue movement disturbance [Unknown]
  - Dyspnoea [Unknown]
  - Pneumonia aspiration [Unknown]
  - Atrial fibrillation [Unknown]
  - Muscle rigidity [Unknown]
  - Pyrexia [Unknown]
  - Cough [Unknown]

NARRATIVE: CASE EVENT DATE: 20190101
